FAERS Safety Report 6129422-8 (Version None)
Quarter: 2009Q1

REPORT INFORMATION
  Report Type: 
  Country: None (occurrence: None)
  Receive Date: 20090324
  Receipt Date: 20090317
  Transmission Date: 20090719
  Serious: Yes (Other)
  Sender: FDA-Public Use
  Company Number: PHHY2009BR10384

PATIENT
  Age: 47 Year
  Sex: Female

DRUGS (1)
  1. DIOVAN AMLO [Suspect]
     Indication: HYPERTENSION
     Dosage: 80/ 5 MG

REACTIONS (1)
  - BLOOD PRESSURE INCREASED [None]
